FAERS Safety Report 6064416-2 (Version None)
Quarter: 2009Q1

REPORT INFORMATION
  Report Type: 
  Country: None (occurrence: None)
  Receive Date: 20090203
  Receipt Date: 20090203
  Transmission Date: 20090719
  Serious: Yes (Death)
  Sender: FDA-Public Use
  Company Number: None

PATIENT
  Age: 48 Year
  Sex: Male
  Weight: 49.6 kg

DRUGS (7)
  1. TRUVADA [Suspect]
     Indication: HIV INFECTION
     Dosage: 200/300 MILLIGRAMS DAILY ORALLY
     Route: 048
     Dates: start: 20081202, end: 20081227
  2. EFAVIRENZ [Suspect]
     Indication: HIV INFECTION
     Dosage: 600 MILLIGRAMS DAILY ORALLY
     Route: 048
     Dates: start: 20081202, end: 20081227
  3. ATARAX [Concomitant]
  4. PARACOD [Concomitant]
  5. DOXYCYCLINE [Concomitant]
  6. MULTI-VITAMIN [Concomitant]
  7. RIFAFOUR [Concomitant]

REACTIONS (10)
  - ANOREXIA [None]
  - BACTERIAL INFECTION [None]
  - DIARRHOEA [None]
  - DYSPNOEA [None]
  - EMOTIONAL DISTRESS [None]
  - IMMUNE RECONSTITUTION SYNDROME [None]
  - MALAISE [None]
  - NIGHT SWEATS [None]
  - SPEECH DISORDER [None]
  - SPUTUM CULTURE POSITIVE [None]
